FAERS Safety Report 21401896 (Version 1)
Quarter: 2022Q3

REPORT INFORMATION
  Report Type: Spontaneous
  Country: US (occurrence: None)
  Receive Date: 20220930
  Receipt Date: 20220930
  Transmission Date: 20221027
  Serious: No
  Sender: FDA-Public Use
  Company Number: None

PATIENT
  Sex: Female

DRUGS (1)
  1. PROMACTA [Suspect]
     Active Substance: ELTROMBOPAG OLAMINE
     Dosage: FREQUENCY : DAILY;?
     Route: 048

REACTIONS (6)
  - Fall [None]
  - Injury [None]
  - Colitis [None]
  - Peripheral swelling [None]
  - Arthralgia [None]
  - Pain in extremity [None]
